FAERS Safety Report 4807772-2 (Version None)
Quarter: 2005Q4

REPORT INFORMATION
  Report Type: 
  Country: None (occurrence: None)
  Receive Date: 20051020
  Receipt Date: 20051007
  Transmission Date: 20060501
  Serious: Yes (Other)
  Sender: FDA-Public Use
  Company Number: 2005139802

PATIENT
  Sex: Female
  Weight: 56.6996 kg

DRUGS (1)
  1. PURELL ORIGINAL (ETHYL ALCOHOL) [Suspect]
     Dosage: INHALATION
     Route: 055
     Dates: start: 20050601, end: 20051006

REACTIONS (5)
  - ACCIDENTAL EXPOSURE [None]
  - DYSPNOEA [None]
  - HYPOAESTHESIA ORAL [None]
  - SWELLING FACE [None]
  - THROAT TIGHTNESS [None]
